FAERS Safety Report 8166673-5 (Version None)
Quarter: 2012Q1

REPORT INFORMATION
  Report Type: 
  Country: None (occurrence: None)
  Receive Date: 20120227
  Receipt Date: 20120216
  Transmission Date: 20120608
  Serious: Yes (Other)
  Sender: FDA-Public Use
  Company Number: US-SANOFI-AVENTIS-2011SA070391

PATIENT
  Age: 76 Year
  Sex: Female

DRUGS (7)
  1. MULTAQ [Suspect]
     Route: 048
     Dates: start: 20100501, end: 20110501
  2. DIOVAN [Concomitant]
  3. INSULIN [Concomitant]
  4. EDECRIN [Concomitant]
  5. COUMADIN [Concomitant]
  6. GLYBURIDE [Concomitant]
  7. SYNTHROID [Concomitant]

REACTIONS (1)
  - ATRIAL FIBRILLATION [None]
